FAERS Safety Report 23453965 (Version 1)
Quarter: 2024Q1

REPORT INFORMATION
  Report Type: Spontaneous
  Country: US (occurrence: US)
  Receive Date: 20240130
  Receipt Date: 20240130
  Transmission Date: 20240409
  Serious: No
  Sender: FDA-Public Use
  Company Number: US-ELI_LILLY_AND_COMPANY-US202401012568

PATIENT
  Age: 55 Year
  Sex: Male

DRUGS (1)
  1. INSULIN LISPRO [Suspect]
     Active Substance: INSULIN LISPRO
     Indication: Product used for unknown indication
     Dosage: 13 U, UNKNOWN
     Route: 058

REACTIONS (3)
  - Blood glucose increased [Recovered/Resolved]
  - Incorrect dose administered [Unknown]
  - Product storage error [Unknown]
